FAERS Safety Report 18333160 (Version 2)
Quarter: 2020Q4

REPORT INFORMATION
  Report Type: Spontaneous
  Country: US (occurrence: US)
  Receive Date: 20201001
  Receipt Date: 20201016
  Transmission Date: 20210113
  Serious: No
  Sender: FDA-Public Use
  Company Number: US-ASTRAZENECA-2020SF24434

PATIENT
  Sex: Male
  Weight: 84.4 kg

DRUGS (1)
  1. BYDUREON BCISE [Suspect]
     Active Substance: EXENATIDE
     Route: 058
     Dates: start: 20200713

REACTIONS (3)
  - Injection site mass [Unknown]
  - Pain in extremity [Unknown]
  - Device leakage [Unknown]
